FAERS Safety Report 5246237-3 (Version None)
Quarter: 2007Q1

REPORT INFORMATION
  Report Type: 
  Country: None (occurrence: None)
  Receive Date: 20070221
  Receipt Date: 20070205
  Transmission Date: 20070707
  Serious: Yes (Other)
  Sender: FDA-Public Use
  Company Number: 2006-02417

PATIENT
  Age: 21 Year
  Sex: Female

DRUGS (1)
  1. TRELSTAR [Suspect]
     Indication: ENDOMETRIOSIS
     Dosage: 11.25 MG. Q3 MONTHS, INTRAMUSCULAR
     Route: 030
     Dates: start: 20060213, end: 20060213

REACTIONS (3)
  - DRUG EXPOSURE DURING PREGNANCY [None]
  - PYELONEPHRITIS [None]
  - UNINTENDED PREGNANCY [None]
